FAERS Safety Report 11954193 (Version 1)
Quarter: 2016Q1

REPORT INFORMATION
  Report Type: Spontaneous
  Country: US (occurrence: US)
  Receive Date: 20160125
  Receipt Date: 20160125
  Transmission Date: 20160526
  Serious: Yes (Other)
  Sender: FDA-Public Use
  Company Number: US-ABBVIE-15K-163-1335033-00

PATIENT
  Age: 58 Year
  Sex: Male

DRUGS (1)
  1. HUMIRA [Suspect]
     Active Substance: ADALIMUMAB
     Indication: PRODUCT USED FOR UNKNOWN INDICATION
     Route: 058
     Dates: start: 20130513, end: 201410

REACTIONS (7)
  - Nerve root compression [Unknown]
  - Cubital tunnel syndrome [Unknown]
  - Paraesthesia [Unknown]
  - Paraesthesia [Recovered/Resolved]
  - Nerve compression [Recovering/Resolving]
  - Pain in extremity [Recovering/Resolving]
  - Arthritis [Unknown]

NARRATIVE: CASE EVENT DATE: 201305
